FAERS Safety Report 18683231 (Version 2)
Quarter: 2021Q1

REPORT INFORMATION
  Report Type: Spontaneous
  Country: US (occurrence: US)
  Receive Date: 20201230
  Receipt Date: 20210107
  Transmission Date: 20210419
  Serious: Yes (Other)
  Sender: FDA-Public Use
  Company Number: US-STRIDES ARCOLAB LIMITED-2020SP016550

PATIENT
  Age: 57 Year
  Sex: Male

DRUGS (1)
  1. NITETHRU (MELATONIN) [Suspect]
     Active Substance: MELATONIN
     Indication: PRODUCT USED FOR UNKNOWN INDICATION
     Dosage: UNK, HE TOOK 1 TABLET AT BEDTIME EACH EVENING FOR APPROX 3 WEEKS
     Route: 065
     Dates: start: 202012, end: 20201223

REACTIONS (1)
  - Vertigo [Recovered/Resolved]

NARRATIVE: CASE EVENT DATE: 202012
